FAERS Safety Report 25975556 (Version 1)
Quarter: 2025Q4

REPORT INFORMATION
  Report Type: Spontaneous
  Country: EU (occurrence: EU)
  Receive Date: 20251029
  Receipt Date: 20251029
  Transmission Date: 20260117
  Serious: Yes (Other)
  Sender: EISAI
  Company Number: EU-Eisai-EC-2025-198781

PATIENT
  Age: 75 Year
  Sex: Male
  Weight: 75 kg

DRUGS (4)
  1. LEQEMBI [Suspect]
     Active Substance: LECANEMAB-IRMB
     Indication: Cognitive disorder
     Route: 042
     Dates: start: 20250925, end: 20251009
  2. ARICEPT [Concomitant]
     Active Substance: DONEPEZIL HYDROCHLORIDE
     Indication: Cognitive disorder
     Dosage: FREQUENCY UNKNOWN
     Route: 048
  3. RAMIPRIL/AMLODIPINE [Concomitant]
     Indication: Hypertension
     Dosage: 5/25MG, FREQUENCY UNKNOWN
     Route: 048
  4. EZESIM [Concomitant]
     Indication: Hyperlipidaemia
     Dosage: 10/40MG, FREQUENCY UNKNOWN
     Route: 048

REACTIONS (1)
  - Cerebellar ischaemia [Not Recovered/Not Resolved]

NARRATIVE: CASE EVENT DATE: 20250101
